FAERS Safety Report 15711197 (Version 1)
Quarter: 2018Q4

REPORT INFORMATION
  Report Type: Spontaneous
  Country: MM (occurrence: MM)
  Receive Date: 20181211
  Receipt Date: 20181211
  Transmission Date: 20190205
  Serious: Yes (Death, Other)
  Sender: FDA-Public Use
  Company Number: PHHY2018MM181057

PATIENT
  Age: 34 Year
  Sex: Female
  Weight: 31 kg

DRUGS (8)
  1. BEDAQUILINE [Suspect]
     Active Substance: BEDAQUILINE
     Indication: TUBERCULOSIS
     Dosage: 200 MG, TIW
     Route: 048
     Dates: start: 20180725
  2. AMOXICILLIN SODIUM+POTASSIUM CLAVULANATE [Suspect]
     Active Substance: AMOXICILLIN\CLAVULANATE POTASSIUM
     Indication: TUBERCULOSIS
     Dosage: UNK
     Route: 065
     Dates: start: 20070424, end: 200802
  3. AMOXICILLIN SODIUM+POTASSIUM CLAVULANATE [Suspect]
     Active Substance: AMOXICILLIN\CLAVULANATE POTASSIUM
     Dosage: 625 MG, BID
     Route: 065
     Dates: start: 20180725
  4. LINEZOLID. [Suspect]
     Active Substance: LINEZOLID
     Indication: TUBERCULOSIS
     Dosage: UNK
     Route: 065
     Dates: start: 20180725
  5. CILASTATIN SODIUM, IMIPENEM [Suspect]
     Active Substance: CILASTATIN SODIUM\IMIPENEM
     Indication: TUBERCULOSIS
     Dosage: 1 G, BID
     Route: 042
     Dates: start: 20180725
  6. CLOFAZIMINE [Suspect]
     Active Substance: CLOFAZIMINE
     Indication: TUBERCULOSIS
     Dosage: 100 MG, QD
     Route: 048
     Dates: start: 20180725
  7. DELAMANID [Suspect]
     Active Substance: DELAMANID
     Indication: TUBERCULOSIS
     Dosage: 100 MG, BID
     Route: 048
     Dates: start: 20180725
  8. SUPRAVIT [Concomitant]
     Indication: MALNUTRITION
     Dosage: UNK
     Route: 065
     Dates: start: 20180917

REACTIONS (11)
  - Platelet count increased [Unknown]
  - Electrocardiogram QT prolonged [Unknown]
  - Dyspnoea [Fatal]
  - Aspartate aminotransferase increased [Unknown]
  - Pneumothorax [Fatal]
  - White blood cell count increased [Unknown]
  - Anaemia [Unknown]
  - Tuberculosis [Fatal]
  - Respiratory failure [Fatal]
  - Empyema [Fatal]
  - Depression [Unknown]

NARRATIVE: CASE EVENT DATE: 20181022
